FAERS Safety Report 5740221-9 (Version None)
Quarter: 2008Q2

REPORT INFORMATION
  Report Type: 
  Country: None (occurrence: None)
  Receive Date: 20080516
  Receipt Date: 20080505
  Transmission Date: 20081010
  Serious: Yes (Hospitalization)
  Sender: FDA-Public Use
  Company Number: JP-SANOFI-SYNTHELABO-N124523

PATIENT
  Age: 67 Year
  Sex: Male

DRUGS (3)
  1. MYTELASE [Suspect]
     Indication: MYASTHENIA GRAVIS
     Dosage: 20 MG
     Route: 048
     Dates: start: 19981201
  2. PYRIDOSTIGMINE BROMIDE [Concomitant]
     Dosage: 180 MG
  3. PYRIDOSTIGMINE BROMIDE [Concomitant]
     Dosage: 240 MG

REACTIONS (2)
  - ABDOMINAL PAIN [None]
  - PANCREATITIS [None]
